FAERS Safety Report 6599956-0 (Version None)
Quarter: 2010Q1

REPORT INFORMATION
  Report Type: 
  Country: None (occurrence: None)
  Receive Date: 20100217
  Receipt Date: 20100210
  Transmission Date: 20100710
  Serious: Yes (Hospitalization, Other)
  Sender: FDA-Public Use
  Company Number: 1000011775

PATIENT
  Age: 75 Year
  Sex: Male

DRUGS (6)
  1. NAMENDA [Suspect]
     Indication: DEMENTIA
     Dosage: 5 MG (5 MG, 1 IN 1 D), ORAL; 10 MG( 5 MG, 2 IN 1 D),, ORAL; 15 MG D, ORAL
     Route: 048
     Dates: start: 20060101, end: 20060101
  2. NAMENDA [Suspect]
     Indication: DEMENTIA
     Dosage: 5 MG (5 MG, 1 IN 1 D), ORAL; 10 MG( 5 MG, 2 IN 1 D),, ORAL; 15 MG D, ORAL
     Route: 048
     Dates: start: 20060101, end: 20060101
  3. NAMENDA [Suspect]
     Indication: DEMENTIA
     Dosage: 5 MG (5 MG, 1 IN 1 D), ORAL; 10 MG( 5 MG, 2 IN 1 D),, ORAL; 15 MG D, ORAL
     Route: 048
     Dates: start: 20060101, end: 20060101
  4. NAMENDA [Suspect]
     Dosage: 20 MG (10 MG, 2 IN 1 D), ORAL; 10 MG (10 MG, 1 IN 1 D), ORAL
     Route: 048
     Dates: start: 20060101, end: 20100201
  5. NAMENDA [Suspect]
     Dosage: 20 MG (10 MG, 2 IN 1 D), ORAL; 10 MG (10 MG, 1 IN 1 D), ORAL
     Route: 048
     Dates: start: 20100201
  6. EXELON [Concomitant]

REACTIONS (6)
  - FALL [None]
  - HYPERSOMNIA [None]
  - INCONTINENCE [None]
  - MYOCLONUS [None]
  - SUBDURAL HAEMORRHAGE [None]
  - URINARY RETENTION [None]
